FAERS Safety Report 21278707 (Version 5)
Quarter: 2025Q1

REPORT INFORMATION
  Report Type: Spontaneous
  Country: DE (occurrence: DE)
  Receive Date: 20220901
  Receipt Date: 20250313
  Transmission Date: 20250409
  Serious: Yes (Hospitalization, Other)
  Sender: AUROBINDO
  Company Number: DE-BoehringerIngelheim-2022-BI-188122

PATIENT
  Age: 60 Year
  Sex: Male
  Weight: 94.5 kg

DRUGS (2)
  1. DOCETAXEL [Suspect]
     Active Substance: DOCETAXEL
     Indication: Lung adenocarcinoma
     Dosage: 75 MILLIGRAM/SQ. METER, ONCE A DAY (FORM OF ADMIN: LIQUID)
     Route: 042
     Dates: start: 20220808
  2. NINTEDANIB [Suspect]
     Active Substance: NINTEDANIB
     Indication: Lung adenocarcinoma
     Dosage: 200 MILLIGRAM, TWO TIMES A DAY
     Route: 048
     Dates: start: 20220809

REACTIONS (4)
  - Febrile neutropenia [Recovered/Resolved]
  - White blood cell count decreased [Not Recovered/Not Resolved]
  - Pneumonia [Recovered/Resolved]
  - COVID-19 [Recovered/Resolved]

NARRATIVE: CASE EVENT DATE: 20220817
